FAERS Safety Report 6545975-X (Version None)
Quarter: 2010Q1

REPORT INFORMATION
  Report Type: 
  Country: None (occurrence: None)
  Receive Date: 20100121
  Receipt Date: 20100121
  Transmission Date: 20100710
  Serious: No
  Sender: FDA-Public Use
  Company Number: None

PATIENT
  Age: 49 Year
  Sex: Male
  Weight: 111.1313 kg

DRUGS (1)
  1. ZICAM COLD REMEDY NASAL GEL ZICAM, LLC [Suspect]
     Indication: NASAL CONGESTION
     Dosage: TWO PUMPS UP EACH NOSTRIL 2-3 TIMES DAILY NASAL
     Route: 045
     Dates: start: 20091101, end: 20091201

REACTIONS (4)
  - DYSGEUSIA [None]
  - HYPOSMIA [None]
  - NASAL CONGESTION [None]
  - RHINORRHOEA [None]
